FAERS Safety Report 18474074 (Version 3)
Quarter: 2021Q1

REPORT INFORMATION
  Report Type: Spontaneous
  Country: US (occurrence: US)
  Receive Date: 20201106
  Receipt Date: 20210107
  Transmission Date: 20210419
  Serious: No
  Sender: FDA-Public Use
  Company Number: US-PFIZER INC-2020391413

PATIENT
  Age: 62 Year
  Sex: Female
  Weight: 133.81 kg

DRUGS (1)
  1. XALKORI [Suspect]
     Active Substance: CRIZOTINIB
     Indication: LUNG NEOPLASM MALIGNANT
     Dosage: 250 MG, 2X/DAY [250MG CAPSULES BY MOUTH ONE IN THE MORNING AND ONE IN THE EVENING]
     Route: 048
     Dates: start: 202003

REACTIONS (3)
  - Drug effective for unapproved indication [Unknown]
  - Vomiting [Unknown]
  - Off label use [Unknown]

NARRATIVE: CASE EVENT DATE: 2020
